FAERS Safety Report 10922522 (Version 1)
Quarter: 2015Q1

REPORT INFORMATION
  Report Type: Spontaneous
  Country: US (occurrence: US)
  Receive Date: 20150317
  Receipt Date: 20150317
  Transmission Date: 20150721
  Serious: Yes (Other)
  Sender: FDA-Public Use
  Company Number: US-SHIRE-US201502020

PATIENT
  Age: 2 Year
  Sex: Male
  Weight: 11.88 kg

DRUGS (1)
  1. ELAPRASE [Suspect]
     Active Substance: IDURSULFASE
     Indication: MUCOPOLYSACCHARIDOSIS II
     Dosage: 5-6 MG 1X/WEEK
     Route: 041
     Dates: start: 20150303

REACTIONS (2)
  - Device leakage [Not Recovered/Not Resolved]
  - Catheter site extravasation [Not Recovered/Not Resolved]

NARRATIVE: CASE EVENT DATE: 20150303
